FAERS Safety Report 9146595 (Version 2)
Quarter: 2013Q1

REPORT INFORMATION
  Report Type: Spontaneous
  Country: US (occurrence: None)
  Receive Date: 20130214
  Receipt Date: 20130214
  Transmission Date: 20140127
  Serious: Yes (Other)
  Sender: FDA-Public Use
  Company Number: 2013-0225

PATIENT
  Age: 37 Year
  Sex: Male

DRUGS (2)
  1. HYDROXYZINE HCL [Suspect]
     Indication: ANXIETY
     Route: 042
     Dates: start: 201103, end: 201103
  2. ZOMETA (ZOLEDRONIC ACID) (ZOLEDRONIC ACID) [Concomitant]

REACTIONS (21)
  - Nausea [None]
  - Headache [None]
  - Unresponsive to stimuli [None]
  - Drooling [None]
  - Respiratory distress [None]
  - Abdominal distension [None]
  - Cerebrovascular accident [None]
  - Injection site pain [None]
  - Burning sensation [None]
  - Pain [None]
  - Paraesthesia [None]
  - Hypoaesthesia [None]
  - Balance disorder [None]
  - Feeling abnormal [None]
  - Joint contracture [None]
  - Skin discolouration [None]
  - Vein disorder [None]
  - Nerve compression [None]
  - Off label use [None]
  - Chest pain [None]
  - Venous thrombosis [None]
